FAERS Safety Report 15658451 (Version 1)
Quarter: 2018Q4

REPORT INFORMATION
  Report Type: Spontaneous
  Country: DE (occurrence: DE)
  Receive Date: 20181126
  Receipt Date: 20181126
  Transmission Date: 20190205
  Serious: Yes (Hospitalization, Other)
  Sender: FDA-Public Use
  Company Number: DE-SAKK-2018SA149260AA

PATIENT
  Age: 72 Year
  Sex: Male
  Weight: 75 kg

DRUGS (16)
  1. METFORMIN [Concomitant]
     Active Substance: METFORMIN HYDROCHLORIDE
     Dosage: 850 MG, 1-0-1-0, TABLET
     Route: 048
  2. AMINEURIN [Concomitant]
     Active Substance: AMITRIPTYLINE HYDROCHLORIDE
     Dosage: 100 MG, 0-0-0.5-0, TABLETTEN
     Route: 048
  3. FORXIGA [Concomitant]
     Active Substance: DAPAGLIFLOZIN
     Dosage: 10 MG, 1-0-0-0, TABLET
     Route: 048
  4. APIDRA [Suspect]
     Active Substance: INSULIN GLULISINE
     Indication: PRODUCT USED FOR UNKNOWN INDICATION
     Dosage: 100 IU, QD
     Route: 058
  5. SAXAGLIPTIN [Suspect]
     Active Substance: SAXAGLIPTIN
     Indication: PRODUCT USED FOR UNKNOWN INDICATION
     Dosage: 5 MG, QD
     Route: 048
  6. ASPIRIN. [Concomitant]
     Active Substance: ASPIRIN
     Dosage: 100 MG, 1-0-0-0, TABLET
     Route: 048
  7. ZOLPIDEM [Concomitant]
     Active Substance: ZOLPIDEM\ZOLPIDEM TARTRATE
     Dosage: 10 MG, BEDARF, TABLET
     Route: 048
  8. HYDROCHLOROTHIAZIDE. [Concomitant]
     Active Substance: HYDROCHLOROTHIAZIDE
     Dosage: 12.5 MG, 1-0-0-0, TABLET
     Route: 048
  9. SAXAGLIPTIN [Suspect]
     Active Substance: SAXAGLIPTIN
     Dosage: UNK
  10. SIMVASTATIN. [Concomitant]
     Active Substance: SIMVASTATIN
     Dosage: 40 MG, 0-0-1-0, TABLETTEN
     Route: 048
  11. VITAMIN B12 [Concomitant]
     Active Substance: CYANOCOBALAMIN
     Dosage: 1000 ?G, INJECTION / INFUSION
     Route: 030
  12. OMEPRAZOLE. [Concomitant]
     Active Substance: OMEPRAZOLE
     Dosage: 20 MG, 1-0-0-0, TABLET
     Route: 048
  13. BISOPROLOL [Concomitant]
     Active Substance: BISOPROLOL
     Dosage: 5 MG, 1-0-0-0, TABLETTEN
     Route: 048
  14. INSULIN [Suspect]
     Active Substance: INSULIN NOS
     Dosage: 12 IU, QD
     Route: 058
  15. SALBULAIR [Concomitant]
     Active Substance: ALBUTEROL SULFATE
     Dosage: 100 ?G, METERED DOSE INHALER
     Route: 055
  16. RELVAR ELLIPTA [Concomitant]
     Active Substance: FLUTICASONE FUROATE\VILANTEROL TRIFENATATE
     Dosage: 92|22 ?G, 1-0-0-0, METERED DOSE INHALER
     Route: 055

REACTIONS (7)
  - General physical health deterioration [Unknown]
  - Accidental overdose [Unknown]
  - Diabetic coma [Unknown]
  - Nausea [Unknown]
  - Hyperinsulinaemic hypoglycaemia [Unknown]
  - Hypoglycaemia [Unknown]
  - Vomiting [Unknown]
